FAERS Safety Report 8613686-2 (Version None)
Quarter: 2012Q3

REPORT INFORMATION
  Report Type: 
  Country: None (occurrence: None)
  Receive Date: 20120823
  Receipt Date: 20120813
  Transmission Date: 20120928
  Serious: Yes (Hospitalization)
  Sender: FDA-Public Use
  Company Number: US-BIOGENIDEC-2012BI025062

PATIENT
  Sex: Female

DRUGS (1)
  1. TYSABRI [Suspect]
     Indication: MULTIPLE SCLEROSIS
     Route: 042

REACTIONS (6)
  - ENCEPHALITIS [None]
  - VOCAL CORD PARALYSIS [None]
  - MENINGITIS [None]
  - HEMIPARESIS [None]
  - HERPES ZOSTER [None]
  - EAR PAIN [None]
